FAERS Safety Report 15726189 (Version 1)
Quarter: 2018Q4

REPORT INFORMATION
  Report Type: Spontaneous
  Country: US (occurrence: US)
  Receive Date: 20181216
  Receipt Date: 20181216
  Transmission Date: 20190205
  Serious: Yes (Other)
  Sender: FDA-Public Use
  Company Number: US-SUPERNUS PHARMACEUTICALS, INC.-2018SUP00065

PATIENT
  Sex: Female
  Weight: 81.63 kg

DRUGS (3)
  1. TOPIRAMATE. [Suspect]
     Active Substance: TOPIRAMATE
     Indication: MIGRAINE PROPHYLAXIS
     Dosage: UNK
     Route: 048
  2. TROKENDI XR [Suspect]
     Active Substance: TOPIRAMATE
     Indication: MIGRAINE PROPHYLAXIS
     Dosage: 50 MG, 1X/DAY
     Route: 048
  3. TROKENDI XR [Suspect]
     Active Substance: TOPIRAMATE
     Indication: MIGRAINE PROPHYLAXIS
     Dosage: UNK
     Route: 048
     Dates: start: 201607

REACTIONS (6)
  - Amnesia [Recovering/Resolving]
  - Aphasia [Recovering/Resolving]
  - Drug ineffective [Recovered/Resolved]
  - Visual impairment [Not Recovered/Not Resolved]
  - Drug tolerance [Recovered/Resolved]
  - Memory impairment [Recovering/Resolving]
